FAERS Safety Report 13134610 (Version 4)
Quarter: 2017Q3

REPORT INFORMATION
  Report Type: Report from Study
  Country: US (occurrence: US)
  Receive Date: 20170120
  Receipt Date: 20170815
  Transmission Date: 20171127
  Serious: Yes (Other)
  Sender: FDA-Public Use
  Company Number: PHEH2014US006557

PATIENT
  Sex: Female
  Weight: 83.9 kg

DRUGS (2)
  1. GILENYA [Suspect]
     Active Substance: FINGOLIMOD HYDROCHLORIDE
     Indication: RELAPSING-REMITTING MULTIPLE SCLEROSIS
     Dosage: 0.5 MG, QD
     Route: 048
     Dates: start: 20140305
  2. GILENYA [Suspect]
     Active Substance: FINGOLIMOD HYDROCHLORIDE
     Dosage: 0.5 MG, QD
     Route: 048
     Dates: start: 20140305

REACTIONS (14)
  - Limb discomfort [Unknown]
  - Discomfort [Recovering/Resolving]
  - Frustration tolerance decreased [Unknown]
  - Dry eye [Unknown]
  - Blood pressure abnormal [Unknown]
  - Foot deformity [Unknown]
  - Musculoskeletal stiffness [Unknown]
  - Malaise [Unknown]
  - Pain [Unknown]
  - Acquired claw toe [Unknown]
  - Gait disturbance [Recovering/Resolving]
  - Bladder discomfort [Unknown]
  - Crying [Unknown]
  - Fatigue [Unknown]
